FAERS Safety Report 24810144 (Version 1)
Quarter: 2025Q1

REPORT INFORMATION
  Report Type: Spontaneous
  Country: CN (occurrence: CN)
  Receive Date: 20250106
  Receipt Date: 20250106
  Transmission Date: 20250408
  Serious: Yes (Hospitalization, Other)
  Sender: CHEPLAPHARM
  Company Number: CN-CHEPLA-2024016195

PATIENT
  Age: 14 Year
  Sex: Female
  Weight: 48 kg

DRUGS (2)
  1. OLANZAPINE [Suspect]
     Active Substance: OLANZAPINE
     Indication: Depression
     Dosage: APRROVAL NUMBER: H20160497?DAILY DOSE: 25 DOSAGE FORM
     Route: 048
     Dates: start: 20241219, end: 20241219
  2. FLUOXETINE [Suspect]
     Active Substance: FLUOXETINE HYDROCHLORIDE
     Indication: Depression
     Dosage: DAILY DOSE: 30 MILLILITRE
     Route: 048
     Dates: start: 20241219, end: 20241219

REACTIONS (4)
  - Somnolence [Recovering/Resolving]
  - Sinus tachycardia [Recovering/Resolving]
  - Muscular weakness [Recovering/Resolving]
  - Intentional overdose [Recovering/Resolving]

NARRATIVE: CASE EVENT DATE: 20241219
